FAERS Safety Report 8767453 (Version 1)
Quarter: 2012Q4

REPORT INFORMATION
  Report Type: 
  Country: JP (occurrence: US)
  Receive Date: 20120904
  Receipt Date: 20120904
  Transmission Date: 20130627
  Serious: Yes (Other)
  Sender: FDA-Public Use
  Company Number: US-JNJFOC-20100705885

PATIENT
  Sex: Male

DRUGS (4)
  1. LEVAQUIN [Suspect]
     Indication: INFLUENZA
     Route: 048
  2. LEVAQUIN [Suspect]
     Indication: INFLUENZA
     Route: 048
  3. LEVAQUIN [Suspect]
     Indication: BACTERIAL INFECTION
     Route: 048
  4. LEVAQUIN [Suspect]
     Indication: BACTERIAL INFECTION
     Route: 048

REACTIONS (7)
  - Tendon injury [Unknown]
  - Tendon rupture [Unknown]
  - Tendonitis [Unknown]
  - Arthritis [Unknown]
  - Tendonitis [Unknown]
  - Tendon rupture [Unknown]
  - Tendonitis [Unknown]
